FAERS Safety Report 25548218 (Version 3)
Quarter: 2025Q4

REPORT INFORMATION
  Report Type: Spontaneous
  Country: EU (occurrence: EU)
  Receive Date: 20250714
  Receipt Date: 20251009
  Transmission Date: 20260118
  Serious: Yes (Other)
  Sender: AUROBINDO
  Company Number: EU-ROCHE-10000319199

PATIENT
  Age: 62 Year
  Sex: Female
  Weight: 69 kg

DRUGS (5)
  1. FULVESTRANT [Suspect]
     Active Substance: FULVESTRANT
     Indication: Breast cancer
     Dosage: 500 MILLIGRAM, EVERY 4 WEEK
     Route: 030
     Dates: start: 20250506
  2. INAVOLISIB [Suspect]
     Active Substance: INAVOLISIB
     Indication: Breast cancer
     Dosage: 9 MILLIGRAM, ONCE A DAY
     Route: 048
  3. INAVOLISIB [Suspect]
     Active Substance: INAVOLISIB
     Dosage: 9 MILLIGRAM, ONCE A DAY
     Route: 048
     Dates: start: 20250602
  4. PALBOCICLIB [Suspect]
     Active Substance: PALBOCICLIB
     Indication: Breast cancer
     Dosage: 100 MILLIGRAM (DAY 1-DAY 21 OF EVERY 28 [DAYS])
     Route: 048
  5. PALBOCICLIB [Suspect]
     Active Substance: PALBOCICLIB
     Dosage: 125 MILLIGRAM (DAILY 21 DAYS EVERY CICLE OF 28 DAYS)
     Route: 048
     Dates: start: 20250602

REACTIONS (6)
  - Haematotoxicity [Unknown]
  - Asthenia [Recovered/Resolved]
  - Hyperglycaemia [Recovered/Resolved]
  - Neutropenia [Recovered/Resolved]
  - Thrombocytopenia [Recovered/Resolved]
  - Anaemia [Recovered/Resolved]

NARRATIVE: CASE EVENT DATE: 20250616
